FAERS Safety Report 7123643-3 (Version None)
Quarter: 2010Q4

REPORT INFORMATION
  Report Type: 
  Country: None (occurrence: None)
  Receive Date: 20101125
  Receipt Date: 20101124
  Transmission Date: 20110411
  Serious: Yes (Hospitalization)
  Sender: FDA-Public Use
  Company Number: IT-BRISTOL-MYERS SQUIBB COMPANY-15367808

PATIENT
  Age: 70 Year
  Sex: Female

DRUGS (5)
  1. COUMADIN [Suspect]
     Indication: ATRIAL FIBRILLATION
     Dates: start: 20100701, end: 20100802
  2. PRITOR [Suspect]
     Indication: HYPERTENSION
     Route: 048
     Dates: start: 20100728, end: 20100802
  3. EUTIROX [Concomitant]
     Dosage: 75 MCG ORAL TABS (DOSAGE = 75 MCG)
     Route: 048
     Dates: start: 20020101, end: 20100802
  4. DILATREND [Concomitant]
     Dosage: 6.25 MG ORAL TABS (DOSAGE = 6.25)
     Route: 048
     Dates: start: 20100707, end: 20100802
  5. PROPAFENONE HCL [Concomitant]
     Dosage: 325 MG PROLONGED RELEASE ORAL CAPS (DOSAGE=325MG)
     Route: 048

REACTIONS (3)
  - FLANK PAIN [None]
  - HAEMATURIA [None]
  - RENAL CYST [None]
